FAERS Safety Report 12134171 (Version 3)
Quarter: 2017Q3

REPORT INFORMATION
  Report Type: Spontaneous
  Country: JP (occurrence: JP)
  Receive Date: 20160301
  Receipt Date: 20170904
  Transmission Date: 20171127
  Serious: Yes (Other)
  Sender: FDA-Public Use
  Company Number: JP-SUN PHARMACEUTICAL INDUSTRIES LTD-2016RR-112336

PATIENT

DRUGS (1)
  1. QUETIAPINE. [Suspect]
     Active Substance: QUETIAPINE
     Indication: DELIRIUM
     Dosage: 12.5 MG AFTER SUPPER AND TWICE ADMINISTERED QUETIAPINE AT 25 MG AT 1 H INTERVALS
     Route: 065

REACTIONS (5)
  - Hypotension [Recovered/Resolved]
  - Bradycardia [Recovered/Resolved]
  - Extra dose administered [Unknown]
  - Altered state of consciousness [Recovered/Resolved]
  - Hypercapnia [Recovered/Resolved]
